FAERS Safety Report 7687086-6 (Version None)
Quarter: 2011Q3

REPORT INFORMATION
  Report Type: 
  Country: None (occurrence: None)
  Receive Date: 20110816
  Receipt Date: 20110810
  Transmission Date: 20111222
  Serious: Yes (Hospitalization)
  Sender: FDA-Public Use
  Company Number: CA-B.I. PHARMACEUTICALS,INC./RIDGEFIELD-2011-CN-01132CN

PATIENT
  Age: 76 Year
  Sex: Female

DRUGS (2)
  1. BETA-BLOCKER [Concomitant]
  2. PRADAXA [Suspect]
     Dates: start: 20110101

REACTIONS (2)
  - RECTAL HAEMORRHAGE [None]
  - HAEMORRHOIDS [None]
